FAERS Safety Report 17934396 (Version 3)
Quarter: 2020Q4

REPORT INFORMATION
  Report Type: Spontaneous
  Country: US (occurrence: US)
  Receive Date: 20200624
  Receipt Date: 20201207
  Transmission Date: 20210113
  Serious: Yes (Other)
  Sender: FDA-Public Use
  Company Number: US-PFIZER INC-2020242100

PATIENT
  Age: 70 Year
  Sex: Female
  Weight: 70.31 kg

DRUGS (3)
  1. IBRANCE [Suspect]
     Active Substance: PALBOCICLIB
     Indication: METASTASES TO BONE
     Dosage: UNK, CYCLIC (FOR TWO WEEKS ON AND THEN TWO WEEKS OFF)
     Dates: start: 202006
  2. IBRANCE [Suspect]
     Active Substance: PALBOCICLIB
     Dosage: 75 MG, CYCLIC [DAILY FOR 14 DAYS, THEN 14 DAYS OFF]
     Route: 048
  3. IBRANCE [Suspect]
     Active Substance: PALBOCICLIB
     Indication: BREAST CANCER METASTATIC
     Dosage: 75 MG, CYCLIC (ONCE A DAY BY MOUTH FOR TWO WEEKS ON AND THEN TWO WEEKS OFF)
     Route: 048
     Dates: start: 201901

REACTIONS (3)
  - Nausea [Unknown]
  - Renal impairment [Not Recovered/Not Resolved]
  - Decreased appetite [Recovered/Resolved]

NARRATIVE: CASE EVENT DATE: 202006
